FAERS Safety Report 24389839 (Version 1)
Quarter: 2024Q4

REPORT INFORMATION
  Report Type: Spontaneous
  Country: CN (occurrence: CN)
  Receive Date: 20241003
  Receipt Date: 20241003
  Transmission Date: 20250115
  Serious: Yes (Other)
  Sender: NOVARTIS
  Company Number: CN-002147023-NVSC2024CN193629

PATIENT
  Age: 73 Year
  Sex: Female
  Weight: 90 kg

DRUGS (1)
  1. ENTRESTO [Suspect]
     Active Substance: SACUBITRIL\VALSARTAN
     Indication: Hypertension
     Dosage: 200 MG, QD
     Route: 048
     Dates: start: 20240924, end: 20240926

REACTIONS (4)
  - Blood pressure abnormal [Unknown]
  - Gastrointestinal disorder [Recovering/Resolving]
  - Abdominal discomfort [Unknown]
  - Discomfort [Unknown]

NARRATIVE: CASE EVENT DATE: 20240925
